FAERS Safety Report 5616521-X (Version None)
Quarter: 2008Q1

REPORT INFORMATION
  Report Type: 
  Country: None (occurrence: None)
  Receive Date: 20080207
  Receipt Date: 20080201
  Transmission Date: 20080703
  Serious: Yes (Death)
  Sender: FDA-Public Use
  Company Number: US-ASTRAZENECA-2008UW01538

PATIENT
  Age: 804 Month
  Sex: Female
  Weight: 53.3 kg

DRUGS (12)
  1. FASLODEX [Suspect]
     Indication: BREAST CANCER METASTATIC
     Dosage: DAY 1
     Route: 030
     Dates: start: 20071119
  2. FASLODEX [Suspect]
     Dosage: DAY 14, 28
     Route: 030
     Dates: end: 20071219
  3. ARIMIDEX [Suspect]
     Indication: BREAST CANCER METASTATIC
     Route: 048
     Dates: start: 20071119, end: 20080112
  4. AMITRIPTYLINE HCL [Concomitant]
  5. HUMALOG [Concomitant]
     Dosage: SLIDING SCALE
  6. LANTUS [Concomitant]
  7. LISINOPRIL [Concomitant]
     Route: 048
  8. LORAZEPAM [Concomitant]
  9. METOCLOPRAMIDE [Concomitant]
  10. PROCHLORPERAZINE [Concomitant]
  11. AMBIEN [Concomitant]
  12. GENERIC PRILOSEC [Concomitant]
     Route: 048

REACTIONS (1)
  - SUDDEN DEATH [None]
